FAERS Safety Report 10041926 (Version 1)
Quarter: 2014Q1

REPORT INFORMATION
  Report Type: Spontaneous
  Country: FR (occurrence: FR)
  Receive Date: 20140327
  Receipt Date: 20140327
  Transmission Date: 20141002
  Serious: Yes (Other)
  Sender: FDA-Public Use
  Company Number: FR-ASTRAZENECA-2014SE19516

PATIENT
  Age: 5 Month
  Sex: Male

DRUGS (2)
  1. EMLA PATCH [Suspect]
     Indication: ANAESTHESIA
     Route: 061
  2. D VITAMIN [Concomitant]

REACTIONS (2)
  - Application site vesicles [Unknown]
  - Application site hypersensitivity [Unknown]
